FAERS Safety Report 8025552-4 (Version None)
Quarter: 2012Q1

REPORT INFORMATION
  Report Type: 
  Country: None (occurrence: None)
  Receive Date: 20120105
  Receipt Date: 20111230
  Transmission Date: 20120608
  Serious: Yes (Other)
  Sender: FDA-Public Use
  Company Number: US-ABBOTT-12P-163-0888682-00

PATIENT
  Age: 74 Year
  Sex: Male

DRUGS (1)
  1. ANDROGEL [Suspect]
     Indication: PRODUCT USED FOR UNKNOWN INDICATION

REACTIONS (8)
  - TYPE 2 DIABETES MELLITUS [None]
  - THERAPEUTIC RESPONSE UNEXPECTED [None]
  - ELEVATED MOOD [None]
  - HYPERVIGILANCE [None]
  - ENERGY INCREASED [None]
  - PROSTATECTOMY [None]
  - FEELING ABNORMAL [None]
  - LIBIDO INCREASED [None]
